FAERS Safety Report 7951762-8 (Version None)
Quarter: 2011Q4

REPORT INFORMATION
  Report Type: 
  Country: None (occurrence: None)
  Receive Date: 20111201
  Receipt Date: 20111128
  Transmission Date: 20120403
  Serious: Yes (Other)
  Sender: FDA-Public Use
  Company Number: JP-PFIZER INC-2011290163

PATIENT
  Age: 78 Year
  Sex: Male

DRUGS (1)
  1. EPLERENONE [Suspect]
     Route: 048

REACTIONS (1)
  - PANCYTOPENIA [None]
